FAERS Safety Report 7213893-X (Version None)
Quarter: 2011Q1

REPORT INFORMATION
  Report Type: 
  Country: None (occurrence: None)
  Receive Date: 20110106
  Receipt Date: 20110103
  Transmission Date: 20110831
  Serious: Yes (Hospitalization)
  Sender: FDA-Public Use
  Company Number: US-ABBOTT-10P-163-0664070-00

PATIENT
  Sex: Male

DRUGS (5)
  1. GLUCAPHAGE ER [Concomitant]
     Indication: DIABETES MELLITUS
  2. HUMIRA [Suspect]
     Indication: PSORIASIS
     Dates: start: 20090408, end: 20100601
  3. HUMIRA [Suspect]
     Dates: start: 20100601, end: 20100823
  4. HUMIRA [Suspect]
  5. LIPITOR [Concomitant]
     Indication: HYPERLIPIDAEMIA

REACTIONS (3)
  - OBSTRUCTION [None]
  - NEPHROLITHIASIS [None]
  - SEPSIS [None]
